FAERS Safety Report 20156351 (Version 1)
Quarter: 2021Q4

REPORT INFORMATION
  Report Type: Spontaneous
  Country: JP (occurrence: JP)
  Receive Date: 20211207
  Receipt Date: 20211207
  Transmission Date: 20220303
  Serious: Yes (Death, Other)
  Sender: FDA-Public Use
  Company Number: JP-EAGLE PHARMACEUTICALS, INC.-JP-2021EAG000302

PATIENT
  Age: 79 Year
  Sex: Male

DRUGS (2)
  1. BENDAMUSTINE HYDROCHLORIDE [Suspect]
     Active Substance: BENDAMUSTINE HYDROCHLORIDE
     Indication: Follicular lymphoma
     Dosage: UNK, BR THERAPY
     Route: 041
  2. RITUXAN [Concomitant]
     Active Substance: RITUXIMAB
     Indication: Follicular lymphoma
     Dosage: UNK, BR THERAPY
     Route: 041

REACTIONS (2)
  - Haemophagocytic lymphohistiocytosis [Fatal]
  - Viral infection [Unknown]
